FAERS Safety Report 24713256 (Version 1)
Quarter: 2024Q4

REPORT INFORMATION
  Report Type: Spontaneous
  Country: US (occurrence: US)
  Receive Date: 20241209
  Receipt Date: 20241209
  Transmission Date: 20250115
  Serious: No
  Sender: REGENERON
  Company Number: US-REGENERON PHARMACEUTICALS, INC.-2023-157235

PATIENT
  Sex: Female

DRUGS (2)
  1. EYLEA [Suspect]
     Active Substance: AFLIBERCEPT
     Indication: Retinal vein occlusion
     Dosage: UNK (FORMULATION: PFS UNKNOWN)
     Dates: end: 20231017
  2. EYLEA [Suspect]
     Active Substance: AFLIBERCEPT
     Indication: Macular oedema

REACTIONS (1)
  - Product dose omission issue [Unknown]

NARRATIVE: CASE EVENT DATE: 20230101
